FAERS Safety Report 4773455-0 (Version None)
Quarter: 2005Q3

REPORT INFORMATION
  Report Type: 
  Country: None (occurrence: None)
  Receive Date: 20050914
  Receipt Date: 20041108
  Transmission Date: 20060218
  Serious: Yes (Death, Other)
  Sender: FDA-Public Use
  Company Number: 163-20785-04110199

PATIENT
  Age: 57 Year
  Sex: Male

DRUGS (2)
  1. THALOMID [Suspect]
     Indication: GLIOBLASTOMA MULTIFORME
     Dosage: 100 MG - 200 MG, DAILY, ORAL
     Route: 048
     Dates: start: 20040618, end: 20040802
  2. DECADRON [Suspect]
     Indication: GLIOBLASTOMA MULTIFORME

REACTIONS (8)
  - ASTHENIA [None]
  - COORDINATION ABNORMAL [None]
  - DEEP VEIN THROMBOSIS [None]
  - DISEASE PROGRESSION [None]
  - HEMIPLEGIA [None]
  - MUSCULAR WEAKNESS [None]
  - PNEUMONIA [None]
  - WEIGHT DECREASED [None]
